FAERS Safety Report 5108323-8 (Version None)
Quarter: 2006Q3

REPORT INFORMATION
  Report Type: 
  Country: None (occurrence: None)
  Receive Date: 20060914
  Receipt Date: 20060914
  Transmission Date: 20061208
  Serious: Yes (Other)
  Sender: FDA-Public Use
  Company Number: None

PATIENT
  Age: 43 Year
  Sex: Male
  Weight: 58.9676 kg

DRUGS (2)
  1. VERSED [Suspect]
     Indication: PREOPERATIVE CARE
     Dosage: 2 MG 1 IV DRIP
     Route: 041
     Dates: start: 20040916, end: 20040916
  2. VERSED [Suspect]
     Indication: SEDATION
     Dosage: 2 MG 1 IV DRIP
     Route: 041
     Dates: start: 20040916, end: 20040916

REACTIONS (5)
  - AMNESIA [None]
  - ANXIETY [None]
  - DRUG INEFFECTIVE [None]
  - MEMORY IMPAIRMENT [None]
  - TREMOR [None]
